FAERS Safety Report 9159698 (Version 1)
Quarter: 2013Q1

REPORT INFORMATION
  Report Type: Spontaneous
  Country: GB (occurrence: GB)
  Receive Date: 20130313
  Receipt Date: 20130313
  Transmission Date: 20140127
  Serious: Yes (Disabling)
  Sender: FDA-Public Use
  Company Number: GB-BAYER-2013-028665

PATIENT
  Age: 67 Year
  Sex: Female
  Weight: 60 kg

DRUGS (8)
  1. NEXAVAR [Suspect]
     Indication: CHEMOTHERAPY
     Dosage: 400 MG, 1/ 1DAYS
     Route: 048
     Dates: start: 20121003, end: 20130207
  2. DEXAMETHASONE [DEXAMETHASONE] [Concomitant]
     Dosage: 6 MG, 2/1DAYS
     Dates: start: 20130206
  3. DIAZEPAM [Concomitant]
     Dosage: 2 MG, 2/ 1 DAYS
     Route: 048
     Dates: start: 201212
  4. LEVOTHYROXINE [Concomitant]
     Dosage: 75 ?G, 1/ 1DAYS
     Route: 048
  5. OMEPRAZOLE [Concomitant]
     Dosage: 20 MG, 1/ 1DAYS
     Route: 048
     Dates: start: 201212
  6. OXYCONTIN [Concomitant]
     Dosage: 70 MG, 2/ 1DAYS
     Route: 048
     Dates: start: 201211
  7. PREGABALIN [Concomitant]
     Dosage: 200 MG, 1 DAYS
     Route: 048
     Dates: start: 201212
  8. SERTRALINE [Concomitant]
     Dosage: 50 MG,1/ 1DAYS

REACTIONS (2)
  - Decubitus ulcer [Not Recovered/Not Resolved]
  - Skin necrosis [Not Recovered/Not Resolved]
